FAERS Safety Report 8165842-8 (Version None)
Quarter: 2012Q1

REPORT INFORMATION
  Report Type: 
  Country: None (occurrence: None)
  Receive Date: 20120103
  Receipt Date: 20111103
  Transmission Date: 20120608
  Serious: No
  Sender: FDA-Public Use
  Company Number: AE-2011-002512

PATIENT
  Age: 63 Year
  Sex: Female
  Weight: 108.8633 kg

DRUGS (10)
  1. SPIRONOLACTONE [Concomitant]
  2. WARFARIN SODIUM [Concomitant]
  3. INCIVEK [Suspect]
     Dosage: 2250 MG (750 MG,1 IN 8 HR)
     Dates: start: 20110926
  4. PEGASYS [Concomitant]
  5. LISINOPRIL [Concomitant]
  6. RIBAVIRIN [Concomitant]
  7. DIGOXIN [Concomitant]
  8. CLORID [Concomitant]
  9. AMLODIPINE [Concomitant]
  10. LASIX (LASIX) [Concomitant]

REACTIONS (2)
  - DECREASED APPETITE [None]
  - NAUSEA [None]
